FAERS Safety Report 7802536-X (Version None)
Quarter: 2011Q4

REPORT INFORMATION
  Report Type: 
  Country: None (occurrence: None)
  Receive Date: 20111007
  Receipt Date: 20111001
  Transmission Date: 20120403
  Serious: Yes (Other)
  Sender: FDA-Public Use
  Company Number: GB-UCBSA-042739

PATIENT
  Sex: Female

DRUGS (4)
  1. METHOTREXATE [Concomitant]
  2. LELUNOMIDE [Concomitant]
  3. CIMZIA [Suspect]
     Route: 058
     Dates: start: 20101201
  4. CIMZIA [Suspect]
     Route: 058
     Dates: start: 20110301, end: 20110101

REACTIONS (4)
  - HUMERUS FRACTURE [None]
  - DRUG INEFFECTIVE [None]
  - FALL [None]
  - BRONCHITIS VIRAL [None]
